FAERS Safety Report 16240683 (Version 8)
Quarter: 2021Q1

REPORT INFORMATION
  Report Type: Spontaneous
  Country: US (occurrence: US)
  Receive Date: 20190425
  Receipt Date: 20210111
  Transmission Date: 20210419
  Serious: Yes (Other)
  Sender: FDA-Public Use
  Company Number: US-PFIZER INC-2019144556

PATIENT
  Age: 42 Year
  Sex: Male

DRUGS (6)
  1. LYRICA [Suspect]
     Active Substance: PREGABALIN
     Dosage: 750 MG, DAILY(2CAPS MORNING AND 3CAPS AT NIGHT/2CAPS 2X/DAY ALONG 1CAP AT MIDDAY)
     Route: 048
  2. LYRICA [Suspect]
     Active Substance: PREGABALIN
     Indication: DIABETIC NEUROPATHY
     Dosage: 750 MG, DAILY (150 MG, 2 MORNING 1 AFTERNOON 2 AT NIGHT)
     Dates: start: 20170101
  3. LYRICA [Suspect]
     Active Substance: PREGABALIN
     Dosage: 450 MG, DAILY (TAKE 2 CAPSULES TWICE A DAY ALONG WITH 1 CAPSULE AT MIDDAY)
     Route: 048
  4. LYRICA [Suspect]
     Active Substance: PREGABALIN
     Dosage: 750 MG, DAILY (2 CAPS TWICE A DAY ALONG WITH 1 CAP MIDDAY)
     Route: 048
  5. LYRICA [Suspect]
     Active Substance: PREGABALIN
     Indication: NEUROPATHY PERIPHERAL
     Dosage: 150 MG, 3X/DAY
     Route: 048
     Dates: start: 20190422
  6. LYRICA [Suspect]
     Active Substance: PREGABALIN
     Dosage: 750 MG, DAILY (150 MG, 2 IN THE MORNING, 1 IN THE AFTERNOON AND 2 IN THE EVENING)
     Route: 048

REACTIONS (3)
  - Loss of consciousness [Unknown]
  - Somnolence [Unknown]
  - Prescribed overdose [Unknown]

NARRATIVE: CASE EVENT DATE: 20170101
